FAERS Safety Report 9254352 (Version 2)
Quarter: 2013Q2

REPORT INFORMATION
  Report Type: Spontaneous
  Country: AU (occurrence: AU)
  Receive Date: 20130425
  Receipt Date: 20130521
  Transmission Date: 20140414
  Serious: Yes (Other)
  Sender: FDA-Public Use
  Company Number: PHHY2013AU040168

PATIENT
  Sex: Female

DRUGS (2)
  1. ACLASTA [Suspect]
     Dosage: 5 MG PER 100 ML
     Route: 042
  2. CALCITRIOL [Concomitant]
     Dosage: UNK

REACTIONS (2)
  - Fracture [Unknown]
  - Drug ineffective [Unknown]
